FAERS Safety Report 13750491 (Version 2)
Quarter: 2017Q4

REPORT INFORMATION
  Report Type: Spontaneous
  Country: DE (occurrence: DE)
  Receive Date: 20170713
  Receipt Date: 20171107
  Transmission Date: 20180320
  Serious: Yes (Hospitalization, Other)
  Sender: FDA-Public Use
  Company Number: DE-SA-2017SA093867

PATIENT
  Age: 33 Year
  Sex: Female
  Weight: 60 kg

DRUGS (4)
  1. FENISTIL [Concomitant]
     Active Substance: DIMETHINDENE
     Route: 065
  2. IBUPROFEN. [Concomitant]
     Active Substance: IBUPROFEN
     Route: 065
  3. LEMTRADA [Suspect]
     Active Substance: ALEMTUZUMAB
     Indication: MULTIPLE SCLEROSIS
     Dosage: DOSE:12 MILLIGRAM(S)/DECILITRE
     Route: 041
     Dates: start: 20170424, end: 20170426
  4. ACICLOVIR [Concomitant]
     Active Substance: ACYCLOVIR
     Indication: ANTIVIRAL PROPHYLAXIS
     Route: 048
     Dates: end: 20170522

REACTIONS (11)
  - Neutropenia [Recovered/Resolved]
  - Lymphadenopathy [Unknown]
  - Neck pain [Recovered/Resolved]
  - Pain [Recovered/Resolved]
  - Mouth ulceration [Unknown]
  - Oropharyngeal pain [Unknown]
  - Lymphocyte count increased [Not Recovered/Not Resolved]
  - Agranulocytosis [Recovered/Resolved]
  - Leukopenia [Recovered/Resolved]
  - Oral pain [Unknown]
  - Pyrexia [Recovered/Resolved]

NARRATIVE: CASE EVENT DATE: 20170522
